FAERS Safety Report 14479665 (Version 1)
Quarter: 2018Q1

REPORT INFORMATION
  Report Type: Report from Study
  Country: US (occurrence: US)
  Receive Date: 20180202
  Receipt Date: 20180202
  Transmission Date: 20180509
  Serious: Yes (Other)
  Sender: FDA-Public Use
  Company Number: PHEH2018US003714

PATIENT
  Age: 46 Year
  Sex: Male

DRUGS (1)
  1. ENTRESTO [Suspect]
     Active Substance: SACUBITRIL\VALSARTAN
     Indication: CARDIAC FAILURE
     Dosage: 1 DF, (SACUBITRIL 24 MG/ VALSARTAN 26 MG) BID
     Route: 048

REACTIONS (2)
  - Myocardial infarction [Unknown]
  - Blood pressure inadequately controlled [Unknown]

NARRATIVE: CASE EVENT DATE: 20180106
